FAERS Safety Report 9960518 (Version 1)
Quarter: 2014Q1

REPORT INFORMATION
  Report Type: Spontaneous
  Country: US (occurrence: US)
  Receive Date: 20140305
  Receipt Date: 20140305
  Transmission Date: 20141002
  Serious: No
  Sender: FDA-Public Use
  Company Number: US-ABBVIE-13P-163-1107467-00

PATIENT
  Sex: Male

DRUGS (8)
  1. HUMIRA [Suspect]
     Indication: CROHN^S DISEASE
     Dates: start: 2012
  2. IMODIUM [Concomitant]
     Indication: CROHN^S DISEASE
  3. DICLYCLOMINE [Concomitant]
     Indication: CROHN^S DISEASE
  4. FLAGYL [Concomitant]
     Indication: CROHN^S DISEASE
  5. CIPRO [Concomitant]
     Indication: CROHN^S DISEASE
  6. MVI [Concomitant]
     Indication: VITAMIN SUPPLEMENTATION
  7. VITAMIN C [Concomitant]
     Indication: VITAMIN SUPPLEMENTATION
  8. VITAMIN D [Concomitant]
     Indication: VITAMIN SUPPLEMENTATION

REACTIONS (1)
  - Injection site pain [Not Recovered/Not Resolved]
